FAERS Safety Report 23748960 (Version 1)
Quarter: 2024Q2

REPORT INFORMATION
  Report Type: Spontaneous
  Country: US (occurrence: None)
  Receive Date: 20240416
  Receipt Date: 20240416
  Transmission Date: 20240717
  Serious: No
  Sender: FDA-Public Use
  Company Number: None

PATIENT
  Sex: Male

DRUGS (3)
  1. MYCOPHENOLIC ACID [Suspect]
     Active Substance: MYCOPHENOLIC ACID
     Indication: Chronic kidney disease
     Dosage: OTHER QUANTITY : TAKE 3 TABLETS;?FREQUENCY : TWICE A DAY;?
     Route: 048
     Dates: start: 20201111
  2. EVEROLIMUS [Suspect]
     Active Substance: EVEROLIMUS
  3. SIROLIMUS [Concomitant]
     Active Substance: SIROLIMUS

REACTIONS (4)
  - Pectus excavatum [None]
  - Post procedural complication [None]
  - Post procedural infection [None]
  - Impaired healing [None]
